FAERS Safety Report 12959581 (Version 4)
Quarter: 2017Q1

REPORT INFORMATION
  Report Type: Report from Study
  Country: US (occurrence: US)
  Receive Date: 20161121
  Receipt Date: 20170224
  Transmission Date: 20170428
  Serious: Yes (Hospitalization, Other)
  Sender: FDA-Public Use
  Company Number: US-AMGEN-USASL2016161763

PATIENT
  Age: 90 Year
  Sex: Female
  Weight: 52 kg

DRUGS (2)
  1. NPLATE [Suspect]
     Active Substance: ROMIPLOSTIM
     Indication: IMMUNE THROMBOCYTOPENIC PURPURA
     Dosage: 500 MUG, UNK
     Route: 065
     Dates: start: 20161029
  2. NPLATE [Suspect]
     Active Substance: ROMIPLOSTIM
     Dosage: 50 MUG, QWK
     Route: 065
     Dates: start: 201611

REACTIONS (14)
  - Platelet count increased [Unknown]
  - Somnolence [Unknown]
  - Insomnia [Unknown]
  - Epistaxis [Unknown]
  - Platelet count decreased [Unknown]
  - Lethargy [Unknown]
  - Fatigue [Unknown]
  - Asthenia [Unknown]
  - Vision blurred [Unknown]
  - Malaise [Unknown]
  - Petechiae [Unknown]
  - Memory impairment [Unknown]
  - Contusion [Unknown]
  - Overdose [Unknown]

NARRATIVE: CASE EVENT DATE: 20161029
